FAERS Safety Report 9216547 (Version 1)
Quarter: 2013Q2

REPORT INFORMATION
  Report Type: Spontaneous
  Country: US (occurrence: US)
  Receive Date: 20130408
  Receipt Date: 20130408
  Transmission Date: 20140414
  Serious: No
  Sender: FDA-Public Use
  Company Number: US-PFIZER INC-2013109840

PATIENT
  Age: 40 Year
  Sex: Male
  Weight: 84.8 kg

DRUGS (1)
  1. CHANTIX [Suspect]
     Indication: SMOKING CESSATION THERAPY
     Dosage: 0.5 MG, 1X/DAY
     Route: 048
     Dates: start: 2010, end: 2010

REACTIONS (2)
  - Dry mouth [Recovered/Resolved]
  - Abnormal dreams [Recovered/Resolved]
